FAERS Safety Report 16979029 (Version 5)
Quarter: 2020Q2

REPORT INFORMATION
  Report Type: Spontaneous
  Country: US (occurrence: US)
  Receive Date: 20191031
  Receipt Date: 20200601
  Transmission Date: 20200713
  Serious: No
  Sender: FDA-Public Use
  Company Number: US-PFIZER INC-2019469524

PATIENT
  Age: 63 Year
  Sex: Female
  Weight: 68 kg

DRUGS (46)
  1. DOCETAXEL. [Suspect]
     Active Substance: DOCETAXEL
     Dosage: 20 MG, SINGLE
     Dates: start: 20140918, end: 20140918
  2. DOCETAXEL ACCORD [Suspect]
     Active Substance: DOCETAXEL
     Indication: BREAST CANCER METASTATIC
     Dosage: 80 MG, SINGLE
     Dates: start: 20140624, end: 20140624
  3. DOCETAXEL ACCORD [Suspect]
     Active Substance: DOCETAXEL
     Dosage: 80 MG, SINGLE
     Dates: start: 20140716, end: 20140716
  4. CYTOXAN [Concomitant]
     Active Substance: CYCLOPHOSPHAMIDE
     Indication: CHEMOTHERAPY
     Dosage: UNK
  5. CLONAZEPAM. [Concomitant]
     Active Substance: CLONAZEPAM
     Dosage: UNK
     Dates: start: 2013, end: 2015
  6. GABAPENTIN. [Concomitant]
     Active Substance: GABAPENTIN
     Dosage: UNK
     Dates: start: 2013, end: 2015
  7. PERI-COLACE [Concomitant]
     Active Substance: CASANTHRANOL\DOCUSATE SODIUM
     Dosage: UNK
  8. COLACE [Concomitant]
     Active Substance: DOCUSATE SODIUM
     Dosage: UNK
     Dates: start: 2013
  9. DOCETAXEL. [Suspect]
     Active Substance: DOCETAXEL
     Dosage: 20 MG, SINGLE
     Dates: start: 20140625, end: 20140625
  10. DOCETAXEL ACCORD [Suspect]
     Active Substance: DOCETAXEL
     Dosage: 20 MG, SINGLE
     Dates: start: 20140827, end: 20140827
  11. DOCETAXEL ACCORD [Suspect]
     Active Substance: DOCETAXEL
     Dosage: 20 MG, SINGLE
     Dates: start: 20140918, end: 20140918
  12. CEPHALEXIN. [Concomitant]
     Active Substance: CEPHALEXIN
     Dosage: UNK
  13. CALCIUM [Concomitant]
     Active Substance: CALCIUM
     Dosage: UNK
  14. CETIRIZINE [Concomitant]
     Active Substance: CETIRIZINE HYDROCHLORIDE
     Dosage: UNK
     Dates: start: 2006
  15. DOCETAXEL. [Suspect]
     Active Substance: DOCETAXEL
     Indication: BREAST CANCER METASTATIC
     Dosage: 80 MG, SINGLE
     Dates: start: 20140624, end: 20140624
  16. DOCETAXEL. [Suspect]
     Active Substance: DOCETAXEL
     Dosage: 20 MG, SINGLE
     Dates: start: 20140827, end: 20140827
  17. DOCETAXEL ACCORD [Suspect]
     Active Substance: DOCETAXEL
     Dosage: 20 MG, SINGLE
     Dates: start: 20140625, end: 20140625
  18. DOCETAXEL ACCORD [Suspect]
     Active Substance: DOCETAXEL
     Dosage: 20 MG, SINGLE
     Dates: start: 20140806, end: 20140806
  19. NEOSAR [Concomitant]
     Active Substance: CYCLOPHOSPHAMIDE
     Indication: CHEMOTHERAPY
     Dosage: UNK
  20. LISINOPRIL. [Concomitant]
     Active Substance: LISINOPRIL
     Dosage: UNK
     Dates: start: 2013, end: 2015
  21. ARIMIDEX [Concomitant]
     Active Substance: ANASTROZOLE
     Indication: HORMONE THERAPY
     Dosage: UNK
     Dates: start: 2014
  22. DOCETAXEL. [Suspect]
     Active Substance: DOCETAXEL
     Dosage: 80 MG, SINGLE
     Dates: start: 20140625, end: 20140625
  23. DOCETAXEL. [Suspect]
     Active Substance: DOCETAXEL
     Dosage: 20 MG, SINGLE
     Dates: start: 20140716, end: 20140716
  24. DOCETAXEL. [Suspect]
     Active Substance: DOCETAXEL
     Dosage: 20 MG, SINGLE
     Dates: start: 20140806, end: 20140806
  25. DOCETAXEL. [Suspect]
     Active Substance: DOCETAXEL
     Dosage: 80 MG, SINGLE
     Dates: start: 20140827, end: 20140827
  26. DOCEFREZ [Suspect]
     Active Substance: DOCETAXEL ANHYDROUS
     Indication: BREAST CANCER METASTATIC
     Dosage: 1 MG, CYCLIC (06 CYCLES, EVERY THREE WEEKS)
     Dates: start: 20140625, end: 20141016
  27. DOCETAXEL ACCORD [Suspect]
     Active Substance: DOCETAXEL
     Dosage: 80 MG, SINGLE
     Dates: start: 20140625, end: 20140625
  28. DOCETAXEL ACCORD [Suspect]
     Active Substance: DOCETAXEL
     Dosage: 80 MG, SINGLE
     Dates: start: 20140806, end: 20140806
  29. TAXOTERE [Concomitant]
     Active Substance: DOCETAXEL
     Indication: CHEMOTHERAPY
     Dosage: UNK
  30. PANTOPRAZOLE SODIUM. [Concomitant]
     Active Substance: PANTOPRAZOLE SODIUM
     Dosage: UNK
  31. XANAX [Concomitant]
     Active Substance: ALPRAZOLAM
     Dosage: UNK
     Dates: start: 2014, end: 2014
  32. DOCETAXEL. [Suspect]
     Active Substance: DOCETAXEL
     Dosage: 80 MG, SINGLE
     Dates: start: 20140806, end: 20140806
  33. DOCETAXEL ACCORD [Suspect]
     Active Substance: DOCETAXEL
     Dosage: 20 MG, SINGLE
     Dates: start: 20140624, end: 20140624
  34. DOCETAXEL ACCORD [Suspect]
     Active Substance: DOCETAXEL
     Dosage: 80 MG, SINGLE
     Dates: start: 20140918, end: 20140918
  35. ADRIAMYCIN [Concomitant]
     Active Substance: DOXORUBICIN HYDROCHLORIDE
     Indication: CHEMOTHERAPY
     Dosage: UNK
  36. ZOCOR [Concomitant]
     Active Substance: SIMVASTATIN
     Dosage: UNK
     Dates: start: 2005
  37. DOCETAXEL ACCORD [Suspect]
     Active Substance: DOCETAXEL
     Dosage: 20 MG, SINGLE
     Dates: start: 20140716, end: 20140716
  38. DOCETAXEL ACCORD [Suspect]
     Active Substance: DOCETAXEL
     Dosage: 80 MG, SINGLE
     Dates: start: 20140827, end: 20140827
  39. ONDANSETRON [Concomitant]
     Active Substance: ONDANSETRON
     Dosage: UNK
  40. PRAMIPEXOLE DIHYDROCHLORIDE. [Concomitant]
     Active Substance: PRAMIPEXOLE DIHYDROCHLORIDE
     Dosage: UNK
  41. DOCETAXEL. [Suspect]
     Active Substance: DOCETAXEL
     Dosage: 20 MG, SINGLE
     Dates: start: 20140624, end: 20140624
  42. DOCETAXEL. [Suspect]
     Active Substance: DOCETAXEL
     Dosage: 80 MG, SINGLE
     Dates: start: 20140716, end: 20140716
  43. DOCETAXEL. [Suspect]
     Active Substance: DOCETAXEL
     Dosage: 80 MG, SINGLE
     Dates: start: 20140918, end: 20140918
  44. DOCETAXEL. [Suspect]
     Active Substance: DOCETAXEL
     Indication: BREAST CANCER METASTATIC
     Dosage: 1 MG, CYCLIC (06 CYCLES, EVERY THREE WEEKS)
     Dates: start: 20140625, end: 20141016
  45. DOXIL [Concomitant]
     Active Substance: DOXORUBICIN HYDROCHLORIDE
     Indication: CHEMOTHERAPY
     Dosage: UNK
  46. PERCOCET [Concomitant]
     Active Substance: ACETAMINOPHEN\OXYCODONE HYDROCHLORIDE
     Dosage: UNK

REACTIONS (5)
  - Hair disorder [Not Recovered/Not Resolved]
  - Madarosis [Not Recovered/Not Resolved]
  - Alopecia [Not Recovered/Not Resolved]
  - Hair colour changes [Not Recovered/Not Resolved]
  - Hair texture abnormal [Not Recovered/Not Resolved]

NARRATIVE: CASE EVENT DATE: 201504
